FAERS Safety Report 7760497-6 (Version None)
Quarter: 2011Q3

REPORT INFORMATION
  Report Type: 
  Country: None (occurrence: None)
  Receive Date: 20110919
  Receipt Date: 20091019
  Transmission Date: 20111222
  Serious: Yes (Life-Threatening)
  Sender: FDA-Public Use
  Company Number: PHHY2009SI68708

PATIENT
  Sex: Female

DRUGS (3)
  1. EDMID [Concomitant]
     Indication: CARDIAC DISORDER
     Dosage: 40 MG, UNK
     Route: 048
  2. ASPIRIN [Concomitant]
     Indication: RETINAL ARTERY EMBOLISM
     Dosage: 100 MG, UNK
     Route: 048
  3. AMLODIPINE BESYLATE [Suspect]
     Indication: HYPERTENSION
     Dosage: UNK
     Route: 048
     Dates: start: 20040528, end: 20040531

REACTIONS (4)
  - ASTHENIA [None]
  - CHEST PAIN [None]
  - FACIAL ASYMMETRY [None]
  - HYPOTENSION [None]
